FAERS Safety Report 12196006 (Version 1)
Quarter: 2016Q1

REPORT INFORMATION
  Report Type: Spontaneous
  Country: US (occurrence: US)
  Receive Date: 20160321
  Receipt Date: 20160321
  Transmission Date: 20160526
  Serious: No
  Sender: FDA-Public Use
  Company Number: US-GILEAD-2016-0204315

PATIENT
  Age: 60 Year
  Sex: Male

DRUGS (2)
  1. COMPLERA [Suspect]
     Active Substance: EMTRICITABINE\RILPIVIRINE HYDROCHLORIDE\TENOFOVIR DISOPROXIL FUMARATE
     Indication: PRODUCT USED FOR UNKNOWN INDICATION
     Route: 065
  2. ATRIPLA [Suspect]
     Active Substance: EFAVIRENZ\EMTRICITABINE\TENOFOVIR DISOPROXIL FUMARATE
     Indication: PRODUCT USED FOR UNKNOWN INDICATION
     Route: 065

REACTIONS (13)
  - Depression [Unknown]
  - Insomnia [Unknown]
  - Abnormal dreams [Unknown]
  - Neuropathy peripheral [Unknown]
  - Fat redistribution [Unknown]
  - Flatulence [Unknown]
  - Osteopenia [Unknown]
  - Nerve injury [Unknown]
  - Hepatic enzyme increased [Unknown]
  - Memory impairment [Unknown]
  - Night sweats [Unknown]
  - Diarrhoea [Unknown]
  - Abdominal distension [Unknown]
